FAERS Safety Report 4551814-9 (Version None)
Quarter: 2005Q1

REPORT INFORMATION
  Report Type: 
  Country: None (occurrence: None)
  Receive Date: 20050110
  Receipt Date: 20041229
  Transmission Date: 20050727
  Serious: Yes (Life-Threatening, Hospitalization)
  Sender: FDA-Public Use
  Company Number: 2004111564

PATIENT
  Sex: Male
  Weight: 49.8957 kg

DRUGS (7)
  1. NEURONTIN [Suspect]
     Indication: DIABETIC NEUROPATHY
     Dosage: 800 MG (400 MG, 2 IN 1 D), ORAL
     Route: 048
     Dates: start: 20040101, end: 20041208
  2. DIURETICS (DIURETICS) [Suspect]
     Indication: ILL-DEFINED DISORDER
  3. RAMIPRIL [Concomitant]
  4. ATORVASTATIN (ATORVASTATIN) [Concomitant]
  5. ASPIRIN [Concomitant]
  6. METFORMIN HCL [Concomitant]
  7. BISOPROLOL FUMARATE [Concomitant]

REACTIONS (8)
  - CEREBRAL HAEMORRHAGE [None]
  - DIZZINESS [None]
  - HEADACHE [None]
  - HYPOAESTHESIA [None]
  - HYPONATRAEMIA [None]
  - TREATMENT NONCOMPLIANCE [None]
  - VERTIGO [None]
  - VOMITING [None]
